FAERS Safety Report 4524093-6 (Version None)
Quarter: 2004Q4

REPORT INFORMATION
  Report Type: 
  Country: None (occurrence: None)
  Receive Date: 20041119
  Receipt Date: 20040802
  Transmission Date: 20050328
  Serious: No
  Sender: FDA-Public Use
  Company Number: PHEH2004US08316

PATIENT
  Age: 43 Year
  Sex: Female

DRUGS (5)
  1. ZELNORM [Suspect]
     Indication: IRRITABLE BOWEL SYNDROME
     Dosage: 6 MG, BID, ORAL
     Route: 048
     Dates: start: 20040728
  2. BUPROPION HYDROCHLORIDE [Concomitant]
  3. OVCON (NORETHISTERONE) [Concomitant]
  4. VALIUM [Concomitant]
  5. PERCOCET [Concomitant]

REACTIONS (4)
  - DIZZINESS [None]
  - FATIGUE [None]
  - PAIN [None]
  - PHARYNGOLARYNGEAL PAIN [None]
